FAERS Safety Report 9279513 (Version 3)
Quarter: 2013Q3

REPORT INFORMATION
  Report Type: Spontaneous
  Country: RU (occurrence: RU)
  Receive Date: 20130508
  Receipt Date: 20130903
  Transmission Date: 20140515
  Serious: Yes (Death)
  Sender: FDA-Public Use
  Company Number: RU-ROCHE-1222480

PATIENT
  Age: 54 Year
  Sex: Female

DRUGS (2)
  1. ROCEPHIN [Suspect]
     Indication: ERYSIPELAS
     Route: 030
     Dates: start: 20130502
  2. ROCEPHIN [Suspect]
     Indication: MASTITIS

REACTIONS (2)
  - Disease progression [Fatal]
  - Product counterfeit [Unknown]
